FAERS Safety Report 24053762 (Version 3)
Quarter: 2024Q3

REPORT INFORMATION
  Report Type: Report from Study
  Country: US (occurrence: US)
  Receive Date: 20240705
  Receipt Date: 20240813
  Transmission Date: 20241017
  Serious: Yes (Other)
  Sender: TAKEDA
  Company Number: US-TAKEDA-2024TUS060129

PATIENT
  Sex: Male

DRUGS (3)
  1. IXAZOMIB [Suspect]
     Active Substance: IXAZOMIB
     Indication: Plasmacytoma
     Dosage: 4 MILLIGRAM
     Route: 048
     Dates: start: 20240611
  2. IXAZOMIB [Suspect]
     Active Substance: IXAZOMIB
     Dosage: 4 MILLIGRAM
     Route: 048
  3. LENALIDOMIDE [Concomitant]
     Active Substance: LENALIDOMIDE
     Dosage: UNK
     Route: 065

REACTIONS (10)
  - Rectal haemorrhage [Unknown]
  - Haematochezia [Unknown]
  - Oral herpes [Unknown]
  - Dizziness [Unknown]
  - Headache [Unknown]
  - Pruritus [Unknown]
  - Fatigue [Unknown]
  - Rash pruritic [Unknown]
  - Diarrhoea [Unknown]
  - Nausea [Unknown]
